FAERS Safety Report 6620795-6 (Version None)
Quarter: 2010Q1

REPORT INFORMATION
  Report Type: 
  Country: None (occurrence: None)
  Receive Date: 20100309
  Receipt Date: 20100227
  Transmission Date: 20100710
  Serious: Yes (Hospitalization)
  Sender: FDA-Public Use
  Company Number: BE-WATSON-2010-02576

PATIENT
  Age: 43 Year
  Sex: Male

DRUGS (1)
  1. CABERGOLINE [Suspect]
     Indication: HYPERPROLACTINAEMIA
     Dosage: 1/2 MG PER WEEK

REACTIONS (2)
  - BONE EROSION [None]
  - PNEUMOCEPHALUS [None]
